FAERS Safety Report 15835883 (Version 1)
Quarter: 2019Q1

REPORT INFORMATION
  Report Type: Report from Study
  Country: IL (occurrence: IL)
  Receive Date: 20190117
  Receipt Date: 20190117
  Transmission Date: 20190417
  Serious: Yes (Other)
  Sender: FDA-Public Use
  Company Number: IL-SA-2018SA325652

PATIENT
  Age: 69 Year
  Sex: Male

DRUGS (1)
  1. INSULIN GLARGINE [Suspect]
     Active Substance: INSULIN GLARGINE
     Dosage: 26 IU, QD
     Route: 058
     Dates: start: 20180809

REACTIONS (2)
  - Blood glucose increased [Not Recovered/Not Resolved]
  - Dialysis [Unknown]
